FAERS Safety Report 6418913-8 (Version None)
Quarter: 2009Q4

REPORT INFORMATION
  Report Type: 
  Country: None (occurrence: None)
  Receive Date: 20091029
  Receipt Date: 20091014
  Transmission Date: 20100525
  Serious: Yes (Hospitalization, Disabling, Other)
  Sender: FDA-Public Use
  Company Number: BR-BAYER-200922396LA

PATIENT
  Age: 22 Year
  Sex: Male

DRUGS (6)
  1. BETAFERON [Suspect]
     Indication: MULTIPLE SCLEROSIS
     Dosage: BETAJECT
     Route: 058
  2. BETAFERON [Suspect]
     Dosage: BETAJECT
     Route: 058
     Dates: start: 19980101
  3. CARBAMAZEPINE [Concomitant]
     Indication: DEPRESSION
     Route: 048
     Dates: start: 20070101
  4. CARBAMAZEPINE [Concomitant]
     Dosage: PER DAY
     Route: 048
     Dates: start: 20060101
  5. SENOFIBERATE [Concomitant]
     Indication: BLOOD DISORDER
     Dosage: AT NIGHT
     Route: 048
     Dates: start: 20090601, end: 20090901
  6. ENALAPRIL [Concomitant]
     Indication: HYPERTENSION
     Route: 048
     Dates: start: 20080801

REACTIONS (6)
  - ARTHRALGIA [None]
  - BALANCE DISORDER [None]
  - CONVULSION [None]
  - FALL [None]
  - LIGAMENT RUPTURE [None]
  - MULTIPLE SCLEROSIS [None]
